FAERS Safety Report 10098523 (Version 1)
Quarter: 2014Q2

REPORT INFORMATION
  Report Type: Spontaneous
  Country: US (occurrence: None)
  Receive Date: 20140422
  Receipt Date: 20140422
  Transmission Date: 20141212
  Serious: Yes (Other)
  Sender: FDA-Public Use
  Company Number: None

PATIENT
  Age: 65 Year
  Sex: Female

DRUGS (5)
  1. SPINAL MARCAINE [Suspect]
     Indication: SPINAL ANAESTHESIA
     Route: 037
     Dates: start: 20140417
  2. MIDAZOLAM [Concomitant]
  3. LIDOCAINE [Concomitant]
  4. PROPOFOL [Concomitant]
  5. FENTANYL [Concomitant]

REACTIONS (2)
  - Sensory loss [None]
  - Anaesthetic complication [None]
